FAERS Safety Report 4653797-X (Version None)
Quarter: 2005Q2

REPORT INFORMATION
  Report Type: 
  Country: None (occurrence: None)
  Receive Date: 20050504
  Receipt Date: 20050421
  Transmission Date: 20051028
  Serious: Yes (Congenital Anomaly, Other)
  Sender: FDA-Public Use
  Company Number: 2005001859

PATIENT
  Age: 20 Year
  Sex: Female
  Weight: 52.1637 kg

DRUGS (8)
  1. DEPO-PROVERA [Suspect]
     Indication: CONTRACEPTION
     Dosage: 150 MG (150 MG, EVERY 3 MONTHS,1ST INJECTION), INTRAMUSCULAR
     Route: 030
     Dates: start: 20030918, end: 20030918
  2. DEPO-PROVERA [Suspect]
     Indication: CONTRACEPTION
     Dosage: 150 MG (150 MG, EVERY 3 MONTHS, 2ND INJECTION), INTRAMUSCULAR
     Route: 030
     Dates: start: 20031215, end: 20031215
  3. DEPO-PROVERA [Suspect]
     Indication: CONTRACEPTION
     Dosage: 150 MG (150 MG, EVERY 3 MONTHS, 3RD INJECTION.), INTRAMUSCULAR
     Route: 030
     Dates: start: 20040312, end: 20040312
  4. DEPO-PROVERA [Suspect]
     Indication: CONTRACEPTION
     Dosage: 150 MG (150 MG, EVERY 3 MONTHS, 4TH INJECTION.), INTRAMUSCULAR
     Route: 030
     Dates: start: 20040611, end: 20040611
  5. DEPO-PROVERA [Suspect]
     Indication: CONTRACEPTION
     Dosage: 150 MG (150 MG, EVERY 3 MONTHS, 5TH INJECTION.), INTRAMUSCULAR
     Route: 030
     Dates: start: 20040831, end: 20040831
  6. ESCITALOPRAM OXALATE [Concomitant]
  7. FLUOXETINE HCL [Concomitant]
  8. MULTIVITAMINS (ASCORBIC ACID, ERGOCALCIFEROL, FOLIC ACID, NICOTINAMIDE [Concomitant]

REACTIONS (14)
  - ALOPECIA [None]
  - ARTHROPATHY [None]
  - BLOOD OESTROGEN DECREASED [None]
  - BONE DENSITY DECREASED [None]
  - BONE DISORDER [None]
  - DIZZINESS [None]
  - FATIGUE [None]
  - LIBIDO DECREASED [None]
  - LYMPHADENOPATHY [None]
  - MENSTRUATION IRREGULAR [None]
  - OLIGOMENORRHOEA [None]
  - PREMATURE MENOPAUSE [None]
  - PYREXIA [None]
  - WEIGHT DECREASED [None]
